FAERS Safety Report 17039506 (Version 3)
Quarter: 2020Q3

REPORT INFORMATION
  Report Type: Report from Study
  Country: BR (occurrence: BR)
  Receive Date: 20191115
  Receipt Date: 20200704
  Transmission Date: 20201102
  Serious: Yes (Other)
  Sender: FDA-Public Use
  Company Number: BR-B.I. PHARMACEUTICALS,INC./RIDGEFIELD-2019-MR-000525

PATIENT
  Age: 78 Year
  Sex: Female
  Weight: 46 kg

DRUGS (14)
  1. GILOTRIF [Suspect]
     Active Substance: AFATINIB
     Route: 048
     Dates: start: 202002
  2. METOPROLOL. [Concomitant]
     Active Substance: METOPROLOL
     Indication: CARDIAC DISORDER
     Dosage: 25MG TWICE DAILY
     Route: 048
  3. GILOTRIF [Suspect]
     Active Substance: AFATINIB
     Indication: NON-SMALL CELL LUNG CANCER
     Dosage: 40MG ONCE DAILY
     Route: 048
     Dates: start: 20190410
  4. ESPIRONOLACTONA [Concomitant]
     Active Substance: SPIRONOLACTONE
     Indication: PRODUCT USED FOR UNKNOWN INDICATION
     Dosage: 25MG ONCE DAILY
     Route: 048
  5. DIPIRONA [Concomitant]
     Active Substance: METAMIZOLE
     Indication: PAIN
     Dosage: 1G 3 TIMES PER DAY
     Route: 048
  6. NIFEDIPINE. [Concomitant]
     Active Substance: NIFEDIPINE
     Indication: PAIN
     Dosage: 3 PER DAY
     Route: 048
  7. GILOTRIF [Suspect]
     Active Substance: AFATINIB
     Route: 048
     Dates: start: 20190619
  8. FUROSEMIDA [FUROSEMIDE] [Concomitant]
     Active Substance: FUROSEMIDE
     Indication: CARDIAC DISORDER
     Dosage: 40MG ONCE DAILY
     Route: 048
  9. TIMOLOL. [Concomitant]
     Active Substance: TIMOLOL
     Indication: GLAUCOMA
     Dosage: 1 DROPS IN EACH EYE 3 TIMES PER DAY
     Route: 047
  10. NOVOFER [IRON] [Concomitant]
     Indication: VITAMIN SUPPLEMENTATION
     Dosage: 1 PER DAY
     Route: 048
  11. TYLEX [PARACETAMOL] [Concomitant]
     Active Substance: ACETAMINOPHEN
     Indication: PAIN
     Dosage: 3 PER DAY
     Route: 048
  12. PREGABALINA [Concomitant]
     Active Substance: PREGABALIN
     Indication: PAIN
     Dosage: 75MG TWICE DAILY
     Route: 048
  13. LOSARTANA POTASSICA [Concomitant]
     Active Substance: LOSARTAN
     Indication: HYPERTENSION
     Route: 065
  14. TILEX [Concomitant]
     Indication: PAIN
     Route: 065

REACTIONS (32)
  - Erythema [Unknown]
  - Lip erythema [Recovered/Resolved]
  - Abdominal pain [Recovered/Resolved]
  - Decreased appetite [Not Recovered/Not Resolved]
  - Gingival bleeding [Not Recovered/Not Resolved]
  - Weight decreased [Not Recovered/Not Resolved]
  - Lip pain [Recovered/Resolved]
  - Pain [Unknown]
  - Pruritus [Recovered/Resolved]
  - Nail bed bleeding [Recovered/Resolved]
  - Epistaxis [Recovered/Resolved]
  - Oral mucosal erythema [Not Recovered/Not Resolved]
  - Nail bed bleeding [Not Recovered/Not Resolved]
  - Wound [Recovered/Resolved]
  - Wound [Recovered/Resolved]
  - Cheilitis [Unknown]
  - Herpes virus infection [Recovered/Resolved]
  - Cough [Recovered/Resolved]
  - Eye injury [Recovered/Resolved]
  - Feeding disorder [Recovered/Resolved]
  - Immunodeficiency [Not Recovered/Not Resolved]
  - Nail disorder [Not Recovered/Not Resolved]
  - Nail disorder [Not Recovered/Not Resolved]
  - Diarrhoea [Not Recovered/Not Resolved]
  - Oral pain [Not Recovered/Not Resolved]
  - Eye haemorrhage [Recovered/Resolved]
  - Lip swelling [Recovered/Resolved]
  - Lip discolouration [Recovered/Resolved]
  - Asthenia [Recovered/Resolved]
  - Diarrhoea [Not Recovered/Not Resolved]
  - Neck mass [Unknown]
  - Dry mouth [Unknown]

NARRATIVE: CASE EVENT DATE: 20190626
